FAERS Safety Report 10602046 (Version 2)
Quarter: 2014Q4

REPORT INFORMATION
  Report Type: Spontaneous
  Country: JP (occurrence: JP)
  Receive Date: 20141124
  Receipt Date: 20141201
  Transmission Date: 20150529
  Serious: Yes (Death)
  Sender: FDA-Public Use
  Company Number: JP-SA-2014SA158929

PATIENT
  Age: 67 Year
  Sex: Male

DRUGS (2)
  1. DEXAMETHASONE. [Concomitant]
     Active Substance: DEXAMETHASONE
  2. TAXOTERE [Suspect]
     Active Substance: DOCETAXEL
     Indication: PROSTATE CANCER
     Dosage: 21 COURSES?FREQUENCY-EVERY 4 WEEKS
     Route: 042
     Dates: start: 20110107, end: 20140428

REACTIONS (7)
  - Lobar pneumonia [Fatal]
  - Interstitial lung disease [Fatal]
  - Cough [Fatal]
  - Malaise [Fatal]
  - Pyrexia [Fatal]
  - Productive cough [Fatal]
  - Dyspnoea [Fatal]

NARRATIVE: CASE EVENT DATE: 201407
